FAERS Safety Report 9265360 (Version 1)
Quarter: 2013Q2

REPORT INFORMATION
  Report Type: Spontaneous
  Country: CH (occurrence: CH)
  Receive Date: 20130501
  Receipt Date: 20130501
  Transmission Date: 20140414
  Serious: Yes (Hospitalization)
  Sender: FDA-Public Use
  Company Number: CH-ASTRAZENECA-2013SE29086

PATIENT
  Age: 84 Year
  Sex: Male
  Weight: 81 kg

DRUGS (15)
  1. MERONEM [Suspect]
     Indication: PNEUMONIA BACTERIAL
     Route: 041
     Dates: start: 20130228, end: 20130307
  2. ZYVOXID [Suspect]
     Indication: PNEUMONIA BACTERIAL
     Route: 041
     Dates: start: 20130301, end: 20130307
  3. NOVALGINE [Concomitant]
     Route: 041
     Dates: end: 20130305
  4. PANTOZOL [Concomitant]
     Route: 041
     Dates: end: 20130305
  5. PARACETAMOL [Concomitant]
     Route: 041
     Dates: end: 20130305
  6. MORPHINE [Concomitant]
     Route: 058
     Dates: start: 20130227
  7. SINTROM [Concomitant]
     Route: 048
  8. APROVEL [Concomitant]
     Route: 048
     Dates: start: 20130222
  9. BELOC [Concomitant]
     Route: 048
     Dates: start: 20130222
  10. CLEXANE [Concomitant]
     Route: 058
     Dates: start: 20130222
  11. ZYLORIC [Concomitant]
     Route: 048
     Dates: start: 20130222
  12. TOREM [Concomitant]
     Route: 048
     Dates: start: 20130225
  13. LASIX [Concomitant]
     Route: 040
     Dates: start: 20130304
  14. KONAKION [Concomitant]
     Route: 040
     Dates: start: 20130304
  15. CALCIMAGON D3 [Concomitant]
     Route: 048
     Dates: start: 20130305

REACTIONS (4)
  - Confusional state [Recovering/Resolving]
  - Muscle contractions involuntary [Recovering/Resolving]
  - Tremor [Recovering/Resolving]
  - Disorientation [Recovering/Resolving]
